FAERS Safety Report 18517659 (Version 2)
Quarter: 2021Q1

REPORT INFORMATION
  Report Type: Spontaneous
  Country: US (occurrence: US)
  Receive Date: 20201118
  Receipt Date: 20210216
  Transmission Date: 20210419
  Serious: No
  Sender: FDA-Public Use
  Company Number: US-REDHILL BIOPHARMA-2020RDH04090

PATIENT
  Age: 32 Year
  Sex: Female
  Weight: 77.55 kg

DRUGS (2)
  1. TALICIA [Suspect]
     Active Substance: AMOXICILLIN\OMEPRAZOLE MAGNESIUM\RIFABUTIN
     Indication: HELICOBACTER INFECTION
     Dosage: 3 DOSAGE UNITS, 2X/DAY
     Route: 048
     Dates: start: 20201019, end: 2020
  2. TALICIA [Suspect]
     Active Substance: AMOXICILLIN\OMEPRAZOLE MAGNESIUM\RIFABUTIN
     Dosage: ^PROPER DOSE^
     Dates: start: 2020

REACTIONS (3)
  - Vision blurred [Unknown]
  - Incorrect dose administered [Recovered/Resolved]
  - Fatigue [Unknown]

NARRATIVE: CASE EVENT DATE: 20201019
